FAERS Safety Report 8785511 (Version 3)
Quarter: 2012Q4

REPORT INFORMATION
  Report Type: 
  Country: US (occurrence: US)
  Receive Date: 20120914
  Receipt Date: 20121010
  Transmission Date: 20130627
  Serious: No
  Sender: FDA-Public Use
  Company Number: US-VERTEX PHARMACEUTICAL INC.-AE-2012-011594

PATIENT

DRUGS (7)
  1. VX-950 [Suspect]
     Indication: HEPATITIS C
     Dosage: 750 mg, tid
     Route: 048
     Dates: start: 20120712
  2. PEG-INTRON REDIPEN [Concomitant]
     Indication: HEPATITIS C
     Dosage: 80 ?g, UNK
  3. RIBAVIRIN [Concomitant]
     Indication: HEPATITIS C
  4. ZOLOFT [Concomitant]
     Dosage: 50 mg, UNK
  5. BENADRYL                           /00000402/ [Concomitant]
     Dosage: 25 mg, UNK
  6. PROMETHAZINE [Concomitant]
     Dosage: 12.5 mg, UNK
  7. XANAX [Concomitant]

REACTIONS (11)
  - Drug dose omission [Recovered/Resolved]
  - Depression [Unknown]
  - Cough [Unknown]
  - Nasal congestion [Unknown]
  - Decreased appetite [Not Recovered/Not Resolved]
  - Fatigue [Unknown]
  - Asthenia [Not Recovered/Not Resolved]
  - Anaemia [Unknown]
  - Nausea [Unknown]
  - Diarrhoea [Not Recovered/Not Resolved]
  - Pruritus [Unknown]
